FAERS Safety Report 4433375-8 (Version None)
Quarter: 2004Q3

REPORT INFORMATION
  Report Type: 
  Country: None (occurrence: None)
  Receive Date: 20040824
  Receipt Date: 20040813
  Transmission Date: 20050211
  Serious: Yes (Hospitalization)
  Sender: FDA-Public Use
  Company Number: 2004228881GB

PATIENT
  Age: 42 Year
  Sex: Male

DRUGS (3)
  1. SULFASALAZINE [Suspect]
     Dosage: ORAL
     Route: 048
     Dates: start: 20040601, end: 20040723
  2. DICLOFENAC [Concomitant]
  3. CO-CODAMOL [Concomitant]

REACTIONS (5)
  - ABDOMINAL DISCOMFORT [None]
  - DIARRHOEA [None]
  - HAEMATOCHEZIA [None]
  - RHEUMATOID ARTHRITIS [None]
  - VOMITING [None]
